FAERS Safety Report 6334951-8 (Version None)
Quarter: 2009Q3

REPORT INFORMATION
  Report Type: 
  Country: None (occurrence: None)
  Receive Date: 20090828
  Receipt Date: 20090828
  Transmission Date: 20100115
  Serious: Yes (Other)
  Sender: FDA-Public Use
  Company Number: None

PATIENT
  Age: 23 Year
  Sex: Male
  Weight: 80.7403 kg

DRUGS (4)
  1. LAMOTRIGINE [Suspect]
     Indication: BIPOLAR DISORDER
     Dosage: ONCE PO Q HS
     Route: 048
     Dates: start: 20080906, end: 20080926
  2. LAMOTRIGINE [Suspect]
     Indication: DEPRESSION
     Dosage: ONCE PO Q HS
     Route: 048
     Dates: start: 20080906, end: 20080926
  3. PROZAC [Concomitant]
  4. ABILIFY [Concomitant]

REACTIONS (3)
  - IRRITABILITY [None]
  - PRODUCT SUBSTITUTION ISSUE [None]
  - TREMOR [None]
